FAERS Safety Report 12834512 (Version 1)
Quarter: 2016Q4

REPORT INFORMATION
  Report Type: Spontaneous
  Country: CA (occurrence: CA)
  Receive Date: 20161010
  Receipt Date: 20161010
  Transmission Date: 20170207
  Serious: Yes (Other)
  Sender: FDA-Public Use
  Company Number: CA-PFIZER INC-2016426395

PATIENT
  Age: 67 Year
  Sex: Female

DRUGS (2)
  1. LYRICA [Suspect]
     Active Substance: PREGABALIN
     Indication: NEURALGIA
     Dosage: 75 MG, 2X/DAY
     Route: 048
     Dates: start: 2014, end: 20160808
  2. PROLIA [Concomitant]
     Active Substance: DENOSUMAB
     Indication: PREMATURE MENOPAUSE
     Dosage: 60 MG, CYCLIC (ONCE EVERY 6 MONTHS)

REACTIONS (10)
  - Platelet count decreased [Recovered/Resolved]
  - Dry eye [Not Recovered/Not Resolved]
  - Peripheral swelling [Unknown]
  - Swelling face [Not Recovered/Not Resolved]
  - Atrial fibrillation [Unknown]
  - Joint swelling [Not Recovered/Not Resolved]
  - Gait disturbance [Not Recovered/Not Resolved]
  - Fluid overload [Unknown]
  - Dysstasia [Unknown]
  - Anaemia [Not Recovered/Not Resolved]

NARRATIVE: CASE EVENT DATE: 201511
